FAERS Safety Report 7470921-4 (Version None)
Quarter: 2011Q2

REPORT INFORMATION
  Report Type: 
  Country: None (occurrence: None)
  Receive Date: 20110428
  Receipt Date: 20110412
  Transmission Date: 20111010
  Serious: Yes (Hospitalization)
  Sender: FDA-Public Use
  Company Number: 2010PROUSA00047

PATIENT
  Age: 73 Year
  Sex: Male
  Weight: 101 kg

DRUGS (2)
  1. PROVENGE [Suspect]
     Indication: PROSTATE CANCER METASTATIC
     Dosage: 250 ML, SINGLE, INTRAVENOUS;
     Route: 042
     Dates: start: 20100823, end: 20100823
  2. PROVENGE [Suspect]
     Indication: PROSTATE CANCER METASTATIC
     Dosage: 250 ML, SINGLE, INTRAVENOUS;
     Route: 042
     Dates: start: 20100809, end: 20100809

REACTIONS (5)
  - COLONIC PSEUDO-OBSTRUCTION [None]
  - HYPOKALAEMIA [None]
  - ILEUS [None]
  - MALAISE [None]
  - DECREASED APPETITE [None]
